FAERS Safety Report 4342487-9 (Version None)
Quarter: 2004Q1

REPORT INFORMATION
  Report Type: 
  Country: None (occurrence: None)
  Receive Date: 20040213
  Receipt Date: 20040113
  Transmission Date: 20041129
  Serious: Yes (Other)
  Sender: FDA-Public Use
  Company Number: 356164

PATIENT
  Age: 50 Year
  Sex: Female

DRUGS (2)
  1. PEGASYS (PEG-INTERFERON ALFA 2A) 180 MCG/ML [Suspect]
     Indication: DRUG USE FOR UNKNOWN INDICATION
     Dosage: OCCLUSIVE DRESSING TECHNIQUE
     Dates: start: 20030815
  2. COPEGUS [Suspect]
     Indication: DRUG USE FOR UNKNOWN INDICATION
     Dosage: ORAL
     Route: 048

REACTIONS (6)
  - ARTHRALGIA [None]
  - HAEMOGLOBIN ABNORMAL [None]
  - HEADACHE [None]
  - MYALGIA [None]
  - NAUSEA [None]
  - WHITE BLOOD CELL COUNT ABNORMAL [None]
